FAERS Safety Report 5294952-8 (Version None)
Quarter: 2007Q2

REPORT INFORMATION
  Report Type: 
  Country: None (occurrence: None)
  Receive Date: 20070412
  Receipt Date: 20060329
  Transmission Date: 20071010
  Serious: Yes (Other)
  Sender: FDA-Public Use
  Company Number: 200611751EU

PATIENT
  Age: 66 Year
  Sex: Male

DRUGS (1)
  1. NICORETTE [Suspect]
     Indication: SMOKING CESSATION THERAPY
     Dosage: 1GUM SEE DOSAGE TEXT
     Route: 002
     Dates: start: 20010101

REACTIONS (3)
  - CORONARY ARTERY BYPASS [None]
  - DEPENDENCE [None]
  - OVERDOSE [None]
